FAERS Safety Report 20362518 (Version 4)
Quarter: 2025Q3

REPORT INFORMATION
  Report Type: Report from Study
  Country: KR (occurrence: KR)
  Receive Date: 20220121
  Receipt Date: 20250818
  Transmission Date: 20251021
  Serious: Yes (Hospitalization, Other)
  Sender: TAKEDA
  Company Number: KR-TAKEDA-2022TUS002599

PATIENT
  Age: 59 Year
  Sex: Male
  Weight: 73 kg

DRUGS (16)
  1. VEDOLIZUMAB [Suspect]
     Active Substance: VEDOLIZUMAB
     Indication: Colitis ulcerative
  2. NORVASC [Concomitant]
     Active Substance: AMLODIPINE BESYLATE
     Dosage: 5 MILLIGRAM, BID
     Dates: start: 20210801, end: 20210804
  3. Simvastad [Concomitant]
     Dosage: 20 MILLIGRAM, QD
     Dates: start: 20210801, end: 20210804
  4. LOSARTAN [Concomitant]
     Active Substance: LOSARTAN
     Dosage: 50 MILLIGRAM, QD
     Dates: start: 20210801, end: 20210804
  5. CARVEDILOL [Concomitant]
     Active Substance: CARVEDILOL
     Dosage: 125 MILLIGRAM, QD
     Dates: start: 20210801, end: 20210804
  6. Cadil [Concomitant]
     Dosage: 2 MILLIGRAM, QD
     Dates: start: 20210801, end: 20210804
  7. Solondo [Concomitant]
     Dosage: 20 MILLIGRAM, QD
     Dates: start: 20210511
  8. Solondo [Concomitant]
     Dosage: 15 MILLIGRAM, QD
     Dates: end: 20210518
  9. Solondo [Concomitant]
     Dosage: 10 MILLIGRAM, QD
     Dates: start: 20210525
  10. Solondo [Concomitant]
     Dosage: 5 MILLIGRAM, QD
     Dates: end: 20210601
  11. Solondo [Concomitant]
     Dosage: 40 MILLIGRAM, BID
     Dates: start: 20210802, end: 20210802
  12. Solondo [Concomitant]
     Dosage: 5 MILLIGRAM, QD
     Dates: start: 20210817
  13. CORTISOL [Concomitant]
     Active Substance: HYDROCORTISONE
     Dosage: 100 MILLIGRAM, TID
     Dates: start: 20210801, end: 20210804
  14. ASACOL [Concomitant]
     Active Substance: MESALAMINE
     Dosage: 100 MILLIGRAM, BID
     Dates: start: 20210817
  15. GASTER [Concomitant]
     Active Substance: FAMOTIDINE
     Dosage: 20 MILLIGRAM, BID
     Dates: start: 20210801
  16. Donga acetaminophen [Concomitant]
     Dosage: 20 MILLIGRAM, BID
     Dates: start: 20210802, end: 20210802

REACTIONS (1)
  - Colitis ulcerative [Recovered/Resolved]

NARRATIVE: CASE EVENT DATE: 20210801
